FAERS Safety Report 7921720-8 (Version None)
Quarter: 2011Q4

REPORT INFORMATION
  Report Type: 
  Country: None (occurrence: None)
  Receive Date: 20111117
  Receipt Date: 20111110
  Transmission Date: 20120403
  Serious: Yes (Other)
  Sender: FDA-Public Use
  Company Number: BR-GLAXOSMITHKLINE-A0949554A

PATIENT
  Sex: Male
  Weight: 78 kg

DRUGS (1)
  1. FLUTICASONE FUROATE [Suspect]
     Indication: PRODUCT USED FOR UNKNOWN INDICATION
     Route: 045

REACTIONS (4)
  - JOINT DISLOCATION [None]
  - ACCIDENT [None]
  - CONTUSION [None]
  - PRODUCT QUALITY ISSUE [None]
